FAERS Safety Report 25312137 (Version 1)
Quarter: 2025Q2

REPORT INFORMATION
  Report Type: Spontaneous
  Country: SE (occurrence: SE)
  Receive Date: 20250510
  Receipt Date: 20250510
  Transmission Date: 20250717
  Serious: Yes (Hospitalization)
  Sender: NOVO NORDISK
  Company Number: None

PATIENT
  Age: 57 Year
  Sex: Female

DRUGS (1)
  1. OZEMPIC [Suspect]
     Active Substance: SEMAGLUTIDE
     Indication: Weight control
     Dosage: 1 DF, QW(1 INJECTION PER WEEK ACCORDING TO SPECIFIC PRESCRIPTION)

REACTIONS (3)
  - Hypoglycaemia [Recovering/Resolving]
  - Hypoglycaemic seizure [Recovered/Resolved]
  - Off label use [Recovered/Resolved]
